FAERS Safety Report 7681032-7 (Version None)
Quarter: 2011Q3

REPORT INFORMATION
  Report Type: 
  Country: None (occurrence: None)
  Receive Date: 20110812
  Receipt Date: 20110715
  Transmission Date: 20111222
  Serious: No
  Sender: FDA-Public Use
  Company Number: US-BAYER-2011-062620

PATIENT
  Age: 81 Year
  Sex: Female
  Weight: 93 kg

DRUGS (5)
  1. ASPIRIN [Suspect]
  2. FAMOTIDINE [Concomitant]
  3. HYDROCHLOROTHIAZIDE [Concomitant]
  4. SYNTHROID [Concomitant]
  5. MULTI-VITAMINS [Suspect]
     Dosage: 1 DF, QD, BOTTLE COUNT 100S
     Route: 048
     Dates: start: 20110620, end: 20110714

REACTIONS (1)
  - FAECES DISCOLOURED [None]
